FAERS Safety Report 7520107-X (Version None)
Quarter: 2011Q2

REPORT INFORMATION
  Report Type: 
  Country: None (occurrence: None)
  Receive Date: 20110602
  Receipt Date: 20110602
  Transmission Date: 20111010
  Serious: Yes (Disabling, Other)
  Sender: FDA-Public Use
  Company Number: CA-PFIZER INC-2011084606

PATIENT
  Age: 15 Year
  Sex: Female

DRUGS (3)
  1. ZOLOFT [Suspect]
     Dosage: 25 MG, SINGLE, MORNING
  2. NAPROXEN [Suspect]
     Indication: DYSMENORRHOEA
     Dosage: UNK
  3. ZOLOFT [Suspect]
     Dosage: 50 MG, 1X/DAY, NIGHTTIME
     Dates: start: 20110219

REACTIONS (9)
  - NAUSEA [None]
  - DRUG DOSE OMISSION [None]
  - VERTIGO [None]
  - MIGRAINE [None]
  - WITHDRAWAL SYNDROME [None]
  - CONFUSIONAL STATE [None]
  - FEELING ABNORMAL [None]
  - CONVULSION [None]
  - ASTHENIA [None]
